FAERS Safety Report 18857695 (Version 1)
Quarter: 2021Q1

REPORT INFORMATION
  Report Type: Spontaneous
  Country: IT (occurrence: IT)
  Receive Date: 20210208
  Receipt Date: 20210208
  Transmission Date: 20210420
  Serious: Yes (Other)
  Sender: FDA-Public Use
  Company Number: IT-MACLEODS PHARMA UK LTD-MAC2021030025

PATIENT

DRUGS (1)
  1. SILDENAFIL 100 MG [Suspect]
     Active Substance: SILDENAFIL
     Indication: ERECTILE DYSFUNCTION
     Dosage: 100 MILLIGRAM, SINGLE, 1 TOTAL
     Route: 065

REACTIONS (3)
  - Drug abuse [Unknown]
  - Substance use [Unknown]
  - Generalised tonic-clonic seizure [Unknown]
